FAERS Safety Report 13397695 (Version 1)
Quarter: 2017Q2

REPORT INFORMATION
  Report Type: Spontaneous
  Country: US (occurrence: US)
  Receive Date: 20170403
  Receipt Date: 20170403
  Transmission Date: 20170830
  Serious: No
  Sender: FDA-Public Use
  Company Number: US-BAYER-2017-061771

PATIENT
  Age: 76 Year
  Sex: Male

DRUGS (1)
  1. ULTRAVIST [Suspect]
     Active Substance: IOPROMIDE
     Indication: IMAGING PROCEDURE
     Dosage: 80 ML, ONCE
     Route: 042
     Dates: start: 20170330, end: 20170330

REACTIONS (1)
  - Urticaria [None]

NARRATIVE: CASE EVENT DATE: 20170330
